FAERS Safety Report 7346540-7 (Version None)
Quarter: 2011Q1

REPORT INFORMATION
  Report Type: 
  Country: None (occurrence: None)
  Receive Date: 20110311
  Receipt Date: 20110301
  Transmission Date: 20110831
  Serious: Yes (Other)
  Sender: FDA-Public Use
  Company Number: NL-JNJFOC-20110300526

PATIENT
  Sex: Female

DRUGS (5)
  1. DURAGESIC-100 [Suspect]
     Indication: PRODUCT USED FOR UNKNOWN INDICATION
     Route: 062
  2. ARCOXIA [Concomitant]
     Route: 065
  3. DURAGESIC-100 [Suspect]
     Route: 062
  4. BACLOFEN [Concomitant]
     Route: 065
  5. DURAGESIC-100 [Suspect]
     Route: 062

REACTIONS (8)
  - MALAISE [None]
  - WITHDRAWAL SYNDROME [None]
  - DYSPNOEA [None]
  - WRONG TECHNIQUE IN DRUG USAGE PROCESS [None]
  - MUSCULAR WEAKNESS [None]
  - CHEST PAIN [None]
  - DEPRESSION [None]
  - THROAT TIGHTNESS [None]
